FAERS Safety Report 5479665-1 (Version None)
Quarter: 2007Q4

REPORT INFORMATION
  Report Type: 
  Country: None (occurrence: None)
  Receive Date: 20071008
  Receipt Date: 20071005
  Transmission Date: 20080405
  Serious: Yes (Other)
  Sender: FDA-Public Use
  Company Number: B0489067A

PATIENT
  Age: 53 Year
  Sex: Male

DRUGS (7)
  1. VALTREX [Suspect]
     Indication: HERPES ZOSTER
     Dosage: 1000MG THREE TIMES PER DAY
     Route: 048
     Dates: start: 20070213, end: 20070218
  2. LOXONIN [Concomitant]
     Route: 065
  3. MUCOSTA [Concomitant]
     Route: 048
  4. FUCIDINE CAP [Concomitant]
     Route: 061
  5. LEVOFLOXACIN [Concomitant]
     Route: 031
  6. UNKNOWN DRUG [Concomitant]
     Route: 031
  7. ZOVIRAX [Concomitant]
     Route: 031

REACTIONS (3)
  - DYSARTHRIA [None]
  - DYSSTASIA [None]
  - ENCEPHALOPATHY [None]
